FAERS Safety Report 14923183 (Version 9)
Quarter: 2019Q1

REPORT INFORMATION
  Report Type: Report from Study
  Country: CA (occurrence: CA)
  Receive Date: 20180522
  Receipt Date: 20190221
  Transmission Date: 20190417
  Serious: Yes (Hospitalization)
  Sender: FDA-Public Use
  Company Number: CA-ROCHE-1777263

PATIENT
  Age: 50 Year
  Sex: Male
  Weight: 102.4 kg

DRUGS (48)
  1. OCRELIZUMAB. [Suspect]
     Active Substance: OCRELIZUMAB
     Indication: PRIMARY PROGRESSIVE MULTIPLE SCLEROSIS
     Route: 042
     Dates: start: 20160411, end: 20160411
  2. BACLOFEN. [Concomitant]
     Active Substance: BACLOFEN
     Route: 065
     Dates: start: 20150209
  3. OCRELIZUMAB. [Suspect]
     Active Substance: OCRELIZUMAB
     Indication: PRIMARY PROGRESSIVE MULTIPLE SCLEROSIS
     Route: 042
     Dates: start: 20120213, end: 20120213
  4. OCRELIZUMAB. [Suspect]
     Active Substance: OCRELIZUMAB
     Route: 042
     Dates: start: 20120227, end: 20120227
  5. OCRELIZUMAB. [Suspect]
     Active Substance: OCRELIZUMAB
     Route: 042
     Dates: start: 20130128, end: 20130128
  6. OCRELIZUMAB. [Suspect]
     Active Substance: OCRELIZUMAB
     Route: 042
     Dates: start: 20130704, end: 20130704
  7. OCRELIZUMAB. [Suspect]
     Active Substance: OCRELIZUMAB
     Route: 042
     Dates: start: 20150521, end: 20150521
  8. OCRELIZUMAB. [Suspect]
     Active Substance: OCRELIZUMAB
     Route: 042
     Dates: start: 20151102, end: 20151102
  9. OCRELIZUMAB. [Suspect]
     Active Substance: OCRELIZUMAB
     Dosage: SUBSEQUENT DOSES ON 16/MAR/2017 (290 ML), 31/AUG/2017 (559 ML) AND15/FEB/2018 (559 ML) AND 17/JAN/20
     Route: 042
     Dates: start: 20161006, end: 20161006
  10. INFLUENZA VIRUS VACCINE [Concomitant]
     Active Substance: INFLUENZA VIRUS VACCINE
     Route: 065
     Dates: start: 20171101, end: 20171101
  11. BOTOX [Concomitant]
     Active Substance: ONABOTULINUMTOXINA
     Indication: MUSCLE SPASTICITY
     Route: 065
     Dates: start: 20160919, end: 20160919
  12. BOTOX [Concomitant]
     Active Substance: ONABOTULINUMTOXINA
     Route: 065
     Dates: start: 20170330, end: 20170330
  13. OCRELIZUMAB. [Suspect]
     Active Substance: OCRELIZUMAB
     Route: 042
     Dates: start: 20120817, end: 20120817
  14. INFLUENZA VIRUS VACCINE [Concomitant]
     Active Substance: INFLUENZA VIRUS VACCINE
     Indication: ANTIVIRAL PROPHYLAXIS
     Route: 065
     Dates: start: 20111101, end: 20111101
  15. BIOTIN [Concomitant]
     Active Substance: BIOTIN
     Route: 065
     Dates: start: 20170330, end: 20170930
  16. MAGNESIUM SULPHATE [Concomitant]
     Active Substance: MAGNESIUM SULFATE
     Indication: HYPOMAGNESAEMIA
     Route: 065
     Dates: start: 20180506, end: 20180506
  17. CEFAZOLIN [Concomitant]
     Active Substance: CEFAZOLIN
     Indication: CELLULITIS
     Route: 065
     Dates: start: 20180510, end: 20180518
  18. OCRELIZUMAB. [Suspect]
     Active Substance: OCRELIZUMAB
     Route: 042
     Dates: start: 20160919, end: 20160919
  19. OCRELIZUMAB. [Suspect]
     Active Substance: OCRELIZUMAB
     Route: 042
     Dates: start: 20131216, end: 20131216
  20. OCRELIZUMAB. [Suspect]
     Active Substance: OCRELIZUMAB
     Route: 042
     Dates: start: 20140102, end: 20140102
  21. OCRELIZUMAB. [Suspect]
     Active Substance: OCRELIZUMAB
     Route: 042
     Dates: start: 20140602, end: 20140602
  22. OCRELIZUMAB. [Suspect]
     Active Substance: OCRELIZUMAB
     Route: 042
     Dates: start: 20141201, end: 20141201
  23. BENADRYL [Concomitant]
     Active Substance: DIPHENHYDRAMINE HYDROCHLORIDE
     Indication: PREMEDICATION
     Dosage: SAME DOSE ON  27/FEB/2012, 30/JUL/2012, 17/AUG/2012, 14/JAN/2013, 28/JAN/2013, 04/JUL/2013, 18/JUL/2
     Route: 065
     Dates: start: 20120213
  24. INFLUENZA VIRUS VACCINE [Concomitant]
     Active Substance: INFLUENZA VIRUS VACCINE
     Route: 065
     Dates: start: 20121029, end: 20121029
  25. TYLENOL [Concomitant]
     Active Substance: ACETAMINOPHEN
     Indication: NASOPHARYNGITIS
     Route: 065
     Dates: start: 20140726, end: 20140727
  26. BOTOX [Concomitant]
     Active Substance: ONABOTULINUMTOXINA
     Route: 065
     Dates: start: 20161212, end: 20161212
  27. OCRELIZUMAB. [Suspect]
     Active Substance: OCRELIZUMAB
     Route: 042
     Dates: start: 20120730, end: 20120730
  28. OCRELIZUMAB. [Suspect]
     Active Substance: OCRELIZUMAB
     Route: 042
     Dates: start: 20150507, end: 20150507
  29. ALERTEC (CANADA) [Concomitant]
     Indication: FATIGUE
     Route: 048
     Dates: start: 20110510, end: 201607
  30. PRAMIPEXOLE. [Concomitant]
     Active Substance: PRAMIPEXOLE
     Indication: MUSCLE SPASTICITY
     Route: 048
     Dates: start: 20081118
  31. BACLOFEN. [Concomitant]
     Active Substance: BACLOFEN
     Indication: MUSCLE SPASTICITY
     Route: 065
     Dates: start: 20081118, end: 20150208
  32. TYLENOL [Concomitant]
     Active Substance: ACETAMINOPHEN
     Indication: PYREXIA
     Route: 065
     Dates: start: 20140802, end: 20140809
  33. TYLENOL [Concomitant]
     Active Substance: ACETAMINOPHEN
     Route: 065
     Dates: start: 20180310, end: 20180417
  34. VITAMIN B12 [Concomitant]
     Active Substance: CYANOCOBALAMIN
     Indication: VITAMIN B12 DEFICIENCY
     Route: 065
     Dates: start: 20180510
  35. GRAVOL [Concomitant]
     Active Substance: DIMENHYDRINATE
     Indication: NAUSEA
     Route: 065
     Dates: start: 20180507, end: 20180507
  36. CEPHALEXIN. [Concomitant]
     Active Substance: CEPHALEXIN
     Indication: CELLULITIS
     Route: 065
     Dates: start: 20180519, end: 20180601
  37. OCRELIZUMAB. [Suspect]
     Active Substance: OCRELIZUMAB
     Route: 042
     Dates: start: 20130718, end: 20130718
  38. BACLOFEN. [Concomitant]
     Active Substance: BACLOFEN
     Route: 048
  39. ACETAMINOPHEN. [Concomitant]
     Active Substance: ACETAMINOPHEN
     Indication: PREMEDICATION
     Dosage: SAME DOSE ON  27/FEB/2012, 30/JUL/2012, 17/AUG/2012, 14/JAN/2013, 28/JAN/2013, 04/JUL/2013, 18/JUL/2
     Route: 065
     Dates: start: 20120213
  40. METHYLPREDNISOLONE. [Concomitant]
     Active Substance: METHYLPREDNISOLONE
     Indication: PREMEDICATION
     Dosage: SAME DOSE ON  27/FEB/2012, 30/JUL/2012, 17/AUG/2012, 14/JAN/2013, 28/JAN/2013, 04/JUL/2013, 18/JUL/2
     Route: 065
     Dates: start: 20120213
  41. INFLUENZA VIRUS VACCINE [Concomitant]
     Active Substance: INFLUENZA VIRUS VACCINE
     Route: 065
     Dates: start: 201511, end: 201511
  42. METRONIDAZOLE. [Concomitant]
     Active Substance: METRONIDAZOLE
     Route: 065
     Dates: start: 20180629
  43. OCRELIZUMAB. [Suspect]
     Active Substance: OCRELIZUMAB
     Route: 042
     Dates: start: 20140616, end: 20140616
  44. OCRELIZUMAB. [Suspect]
     Active Substance: OCRELIZUMAB
     Route: 042
     Dates: start: 20141117, end: 20141117
  45. OCRELIZUMAB. [Suspect]
     Active Substance: OCRELIZUMAB
     Route: 042
     Dates: start: 20160425, end: 20160425
  46. ZOFRAN [Concomitant]
     Active Substance: ONDANSETRON HYDROCHLORIDE
     Indication: NAUSEA
     Route: 065
     Dates: start: 20180504, end: 20180504
  47. OCRELIZUMAB. [Suspect]
     Active Substance: OCRELIZUMAB
     Route: 042
     Dates: start: 20130114, end: 20130114
  48. OCRELIZUMAB. [Suspect]
     Active Substance: OCRELIZUMAB
     Route: 042
     Dates: start: 20151019, end: 20151019

REACTIONS (3)
  - Enteritis infectious [Recovered/Resolved]
  - Sepsis [Recovered/Resolved]
  - Cellulitis [Recovered/Resolved]

NARRATIVE: CASE EVENT DATE: 20160609
